FAERS Safety Report 24575398 (Version 1)
Quarter: 2024Q4

REPORT INFORMATION
  Report Type: Report from Study
  Country: US (occurrence: US)
  Receive Date: 20241104
  Receipt Date: 20241104
  Transmission Date: 20250115
  Serious: Yes (Other)
  Sender: ABBVIE
  Company Number: US-ABBVIE-5983619

PATIENT

DRUGS (1)
  1. RISANKIZUMAB [Suspect]
     Active Substance: RISANKIZUMAB
     Indication: Skin disorder
     Route: 058

REACTIONS (3)
  - Squamous cell carcinoma of skin [Unknown]
  - Psoriatic arthropathy [Unknown]
  - Psoriasis [Unknown]
